FAERS Safety Report 7007155-3 (Version None)
Quarter: 2010Q2

REPORT INFORMATION
  Report Type: 
  Country: None (occurrence: None)
  Receive Date: 20100225
  Receipt Date: 20091120
  Transmission Date: 20101027
  Serious: No
  Sender: FDA-Public Use
  Company Number: US-JNJFOC-20091106857

PATIENT
  Age: 15 Month
  Sex: Female
  Weight: 14.0615 kg

DRUGS (1)
  1. CHILDREN'S MOTRIN [Suspect]
     Indication: ACCIDENTAL EXPOSURE
     Dosage: IN 1 TOTAL, ORAL
     Route: 048
     Dates: start: 20091120, end: 20091120

REACTIONS (1)
  - ACCIDENTAL DRUG INTAKE BY CHILD [None]
